FAERS Safety Report 12852023 (Version 2)
Quarter: 2017Q1

REPORT INFORMATION
  Report Type: Spontaneous
  Country: US (occurrence: US)
  Receive Date: 20161017
  Receipt Date: 20170126
  Transmission Date: 20170428
  Serious: Yes (Hospitalization)
  Sender: FDA-Public Use
  Company Number: US-CELGENEUS-USA-2016102828

PATIENT
  Age: 63 Year
  Sex: Female
  Weight: 93.52 kg

DRUGS (20)
  1. CYCLOPHOSPHAMIDE. [Concomitant]
     Active Substance: CYCLOPHOSPHAMIDE
     Indication: PRODUCT USED FOR UNKNOWN INDICATION
     Dosage: 50 MILLIGRAM
     Route: 048
     Dates: start: 20151204
  2. LORAZEPAM. [Concomitant]
     Active Substance: LORAZEPAM
     Indication: ANXIETY
     Dosage: .5 MILLIGRAM
     Route: 048
     Dates: start: 20151207
  3. POTASSIUM CHLORIDE. [Concomitant]
     Active Substance: POTASSIUM CHLORIDE
     Indication: PRODUCT USED FOR UNKNOWN INDICATION
     Dosage: 20 MILLIEQUIVALENTS
     Route: 048
     Dates: start: 20151207
  4. CELEBREX [Concomitant]
     Active Substance: CELECOXIB
     Indication: ARTHRITIS
     Dosage: 200 MILLIGRAM
     Route: 048
     Dates: start: 20151207
  5. AVINZA [Concomitant]
     Active Substance: MORPHINE SULFATE
     Indication: PAIN
     Dosage: 30 MILLIGRAM
     Route: 048
     Dates: start: 20151207
  6. ZOFRAN [Concomitant]
     Active Substance: ONDANSETRON HYDROCHLORIDE
     Indication: PRODUCT USED FOR UNKNOWN INDICATION
     Dosage: 8 MILLIGRAM
     Route: 048
     Dates: start: 20151204
  7. NORVASC [Concomitant]
     Active Substance: AMLODIPINE BESYLATE
     Indication: HYPERTENSION
     Dosage: 10 MILLIGRAM
     Route: 048
     Dates: start: 20151207
  8. LYRICA [Concomitant]
     Active Substance: PREGABALIN
     Indication: PAIN
     Dosage: 50 MILLIGRAM
     Route: 048
     Dates: start: 20151204
  9. ZOLOFT [Concomitant]
     Active Substance: SERTRALINE HYDROCHLORIDE
     Indication: DEPRESSION
     Dosage: 50 MILLIGRAM
     Route: 048
     Dates: start: 20151207
  10. BUSPAR [Concomitant]
     Active Substance: BUSPIRONE HYDROCHLORIDE
     Indication: ANXIETY
     Dosage: .5 MILLIGRAM
     Route: 048
     Dates: start: 20151207
  11. REVLIMID [Suspect]
     Active Substance: LENALIDOMIDE
     Indication: PLASMA CELL MYELOMA
     Dosage: 25 MILLIGRAM
     Route: 048
     Dates: start: 20160914
  12. SYNTHROID [Concomitant]
     Active Substance: LEVOTHYROXINE SODIUM
     Indication: HYPOTHYROIDISM
     Dosage: 100 MICROGRAM
     Route: 048
     Dates: start: 20151207
  13. LASIX [Concomitant]
     Active Substance: FUROSEMIDE
     Indication: FLUID RETENTION
     Dosage: 40 MILLIGRAM
     Route: 048
     Dates: start: 20151207
  14. TIZANIDINE HCL [Concomitant]
     Active Substance: TIZANIDINE HYDROCHLORIDE
     Indication: BACK PAIN
     Dosage: 4 MILLIGRAM
     Route: 048
     Dates: start: 20151207
  15. PRILOSEC [Concomitant]
     Active Substance: OMEPRAZOLE MAGNESIUM
     Indication: GASTROOESOPHAGEAL REFLUX DISEASE
     Dosage: 20 MILLIGRAM
     Route: 048
     Dates: start: 20151207
  16. DEXAMETHASONE. [Concomitant]
     Active Substance: DEXAMETHASONE
     Indication: PRODUCT USED FOR UNKNOWN INDICATION
     Dosage: 4 MILLIGRAM
     Route: 048
     Dates: start: 20151204
  17. OXYCODONE HYDROCHLORIDE. [Concomitant]
     Active Substance: OXYCODONE HYDROCHLORIDE
     Indication: PAIN
     Dosage: 60 MILLIGRAM
     Route: 048
     Dates: start: 20151204
  18. OXYCODONE ACETAMINOPHEN [Concomitant]
     Active Substance: ACETAMINOPHEN\OXYCODONE HYDROCHLORIDE
     Indication: PAIN
     Dosage: 5-325MG
     Route: 065
     Dates: start: 20151204
  19. CARAFATE [Concomitant]
     Active Substance: SUCRALFATE
     Indication: GASTROOESOPHAGEAL REFLUX DISEASE
     Dosage: 1 GRAM
     Route: 048
     Dates: start: 20151207
  20. AMBIEN [Concomitant]
     Active Substance: ZOLPIDEM TARTRATE
     Indication: INSOMNIA
     Dosage: 12.5 MILLIGRAM
     Route: 048
     Dates: start: 20151207

REACTIONS (3)
  - Sepsis [Unknown]
  - Pneumonia [Unknown]
  - Acute kidney injury [Unknown]

NARRATIVE: CASE EVENT DATE: 20161003
